FAERS Safety Report 15978546 (Version 2)
Quarter: 2019Q1

REPORT INFORMATION
  Report Type: Spontaneous
  Country: AU (occurrence: AU)
  Receive Date: 20190219
  Receipt Date: 20190224
  Transmission Date: 20190418
  Serious: Yes (Other)
  Sender: FDA-Public Use
  Company Number: AU-STRIDES ARCOLAB LIMITED-2019SP001526

PATIENT
  Age: 33 Year
  Sex: Male

DRUGS (3)
  1. VANCOMYCIN [Suspect]
     Active Substance: VANCOMYCIN
     Indication: RHODOCOCCUS INFECTION
     Dosage: 1.25 G, BID EVERY 12 HOURS
     Route: 065
  2. CIPROFLOXACIN. [Suspect]
     Active Substance: CIPROFLOXACIN
     Indication: RHODOCOCCUS INFECTION
     Dosage: 750 MG, BID
     Route: 048
  3. MEROPENEM. [Concomitant]
     Active Substance: MEROPENEM
     Indication: RHODOCOCCUS INFECTION
     Dosage: 1 G, TID EVERY 8 HOURS
     Route: 042

REACTIONS (2)
  - Pancytopenia [Unknown]
  - Off label use [Unknown]
